FAERS Safety Report 6864145-9 (Version None)
Quarter: 2010Q3

REPORT INFORMATION
  Report Type: 
  Country: None (occurrence: None)
  Receive Date: 20100721
  Receipt Date: 20080315
  Transmission Date: 20110219
  Serious: No
  Sender: FDA-Public Use
  Company Number: US-PFIZER INC-2008025491

PATIENT
  Sex: Female
  Weight: 65.909 kg

DRUGS (3)
  1. CHANTIX [Suspect]
     Indication: SMOKING CESSATION THERAPY
     Dosage: 1MG BID EVERY DAY TDD:2MG
     Route: 048
     Dates: start: 20080207
  2. VITAMINS [Concomitant]
  3. PROZAC [Concomitant]
     Indication: ANXIETY

REACTIONS (3)
  - CONSTIPATION [None]
  - DEPRESSED MOOD [None]
  - PAIN [None]
